FAERS Safety Report 17072004 (Version 1)
Quarter: 2019Q4

REPORT INFORMATION
  Report Type: Spontaneous
  Country: US (occurrence: US)
  Receive Date: 20191125
  Receipt Date: 20191125
  Transmission Date: 20200122
  Serious: No
  Sender: FDA-Public Use
  Company Number: US-MYLANLABS-2019M1109013

PATIENT
  Sex: Female
  Weight: 82 kg

DRUGS (1)
  1. SCOPOLAMINE TRANSDERMAL SYSTEM [Suspect]
     Active Substance: SCOPOLAMINE
     Indication: MOTION SICKNESS
     Route: 062

REACTIONS (3)
  - Adverse drug reaction [Recovering/Resolving]
  - Product adhesion issue [Unknown]
  - Wrong technique in product usage process [Unknown]
